FAERS Safety Report 7349444-9 (Version None)
Quarter: 2011Q1

REPORT INFORMATION
  Report Type: 
  Country: None (occurrence: None)
  Receive Date: 20110314
  Receipt Date: 20101201
  Transmission Date: 20110831
  Serious: No
  Sender: FDA-Public Use
  Company Number: US-ABBOTT-10P-163-0689567-00

PATIENT
  Sex: Female
  Weight: 61.29 kg

DRUGS (4)
  1. CELEXA [Concomitant]
     Indication: DEPRESSION
  2. DEPAKOTE [Suspect]
     Indication: CONVULSION
     Dates: end: 20101124
  3. METHADONE HYDROCHLORIDE [Concomitant]
     Indication: PELVIC PAIN
  4. LISINOPRIL [Concomitant]
     Indication: HYPERTENSION

REACTIONS (2)
  - CRYING [None]
  - TREMOR [None]
